FAERS Safety Report 10018773 (Version 1)
Quarter: 2014Q1

REPORT INFORMATION
  Report Type: Spontaneous
  Country: US (occurrence: US)
  Receive Date: 20140318
  Receipt Date: 20140318
  Transmission Date: 20141002
  Serious: Yes (Other)
  Sender: FDA-Public Use
  Company Number: US-ASTRAZENECA-2014SE17012

PATIENT
  Sex: Female

DRUGS (7)
  1. SYMBICORT [Suspect]
     Indication: ASTHMA
     Route: 055
  2. GENERIC SINGULAIR - MONTELUKAST [Suspect]
     Indication: ASTHMA
  3. PROAIR HFA [Suspect]
     Indication: ASTHMA
     Route: 055
     Dates: start: 200712
  4. SPIRIVA [Suspect]
     Indication: ASTHMA
  5. PRILOSEC [Concomitant]
     Indication: GASTROOESOPHAGEAL REFLUX DISEASE
  6. UNSPECIFIED [Concomitant]
     Indication: BLOOD PRESSURE ABNORMAL
  7. UNSPECIFIED [Concomitant]
     Indication: DIURETIC THERAPY

REACTIONS (10)
  - Choking [Unknown]
  - Altered state of consciousness [Unknown]
  - Somnolence [Not Recovered/Not Resolved]
  - Sinus disorder [Not Recovered/Not Resolved]
  - Sinusitis [Unknown]
  - Dyspnoea [Unknown]
  - Somnolence [Unknown]
  - Cough [Not Recovered/Not Resolved]
  - Hypersensitivity [Not Recovered/Not Resolved]
  - Drug effect delayed [Unknown]
